FAERS Safety Report 17903971 (Version 1)
Quarter: 2020Q2

REPORT INFORMATION
  Report Type: Other
  Country: DE (occurrence: DE)
  Receive Date: 20200617
  Receipt Date: 20200617
  Transmission Date: 20200714
  Serious: Yes (Hospitalization)
  Sender: FDA-Public Use
  Company Number: DE-CELLTRION INC.-2020DE023308

PATIENT

DRUGS (9)
  1. ATORVASTATIN [Concomitant]
     Active Substance: ATORVASTATIN
     Dosage: 10 MG, 0-0-1-0
  2. RITUXIMAB (UNKNOWN) [Suspect]
     Active Substance: RITUXIMAB
     Dosage: NK MG, NACH SCHEMA
  3. ACICLOVIR [Concomitant]
     Active Substance: ACYCLOVIR
     Dosage: 400 MG, 1-1-1-1
  4. DOXORUBICIN [Suspect]
     Active Substance: DOXORUBICIN
     Dosage: NK MG, NACH SCHEMA
  5. BORTEZOMIB. [Suspect]
     Active Substance: BORTEZOMIB
     Dosage: NK MG, NACH SCHEMA
  6. EZETIMIB [Concomitant]
     Active Substance: EZETIMIBE
     Dosage: 10 MG, 0-0-1-0
  7. CYCLOPHOSPHAMID [Suspect]
     Active Substance: CYCLOPHOSPHAMIDE
     Dosage: NK MG, NACH SCHEMA
  8. LIPEGFILGRASTIM [Suspect]
     Active Substance: LIPEGFILGRASTIM
     Dosage: NK MG, NACH SCHEMA
  9. SALBUTAMOL [Concomitant]
     Active Substance: ALBUTEROL
     Dosage: 100 UG, 2-2-2-0

REACTIONS (4)
  - Localised infection [Unknown]
  - Nocturia [Unknown]
  - Scrotal pain [Unknown]
  - Testicular swelling [Unknown]
